FAERS Safety Report 6475783-X (Version None)
Quarter: 2009Q4

REPORT INFORMATION
  Report Type: 
  Country: None (occurrence: None)
  Receive Date: 20091204
  Receipt Date: 20091124
  Transmission Date: 20100525
  Serious: Yes (Hospitalization, Other)
  Sender: FDA-Public Use
  Company Number: US-ELI_LILLY_AND_COMPANY-US200910007380

PATIENT
  Sex: Male
  Weight: 43.991 kg

DRUGS (18)
  1. STRATTERA [Suspect]
     Indication: GENERALISED ANXIETY DISORDER
     Dosage: UNK, DAILY (1/D)
     Route: 065
     Dates: start: 20030601
  2. STRATTERA [Suspect]
     Dosage: 60 MG, UNKNOWN
     Route: 065
     Dates: start: 20060101
  3. STRATTERA [Suspect]
     Dosage: 65 MG, UNKNOWN
     Route: 065
     Dates: start: 20080901
  4. STRATTERA [Suspect]
     Dosage: UNK, UNKNOWN
     Route: 065
     Dates: start: 20081001, end: 20081001
  5. STRATTERA [Suspect]
     Dosage: 40 MG, UNKNOWN
     Route: 065
     Dates: start: 20090501
  6. STRATTERA [Suspect]
     Dosage: 60 MG, UNKNOWN
     Route: 065
     Dates: start: 20090701
  7. TRAZODONE [Concomitant]
     Indication: SLEEP DISORDER
     Dosage: 25 MG, UNKNOWN
     Route: 065
  8. TRAZODONE [Concomitant]
     Dosage: 50 MG, UNKNOWN
     Route: 065
     Dates: start: 20070601
  9. TRAZODONE [Concomitant]
     Dosage: 25 MG, UNKNOWN
     Route: 065
     Dates: start: 20080101, end: 20090101
  10. SEROQUEL [Concomitant]
     Indication: SLEEP DISORDER
     Dosage: 100 MG, 2/D
     Route: 065
  11. SEROQUEL [Concomitant]
     Dosage: 300 MG, UNKNOWN
     Route: 065
     Dates: start: 20080501
  12. SEROQUEL [Concomitant]
     Dosage: 400 MG, DAILY (1/D)
     Dates: start: 20090101
  13. SEROQUEL [Concomitant]
     Dosage: 300 MG, UNKNOWN
     Route: 065
     Dates: start: 20090701
  14. SEROQUEL [Concomitant]
     Dosage: 400 MG, UNKNOWN
     Route: 065
     Dates: start: 20090901
  15. SEROQUEL [Concomitant]
     Dosage: 150 MG, DAILY (1/D)
     Route: 065
     Dates: start: 20091001
  16. ADDERALL 10 [Concomitant]
     Dosage: UNK, UNKNOWN
     Route: 065
     Dates: start: 20090401
  17. CONCERTA [Concomitant]
     Dosage: 18 MG, UNKNOWN
     Route: 065
     Dates: start: 20081101
  18. CONCERTA [Concomitant]
     Dosage: 36 MG, UNKNOWN
     Route: 065
     Dates: start: 20081101, end: 20090101

REACTIONS (4)
  - AUTISM SPECTRUM DISORDER [None]
  - DRUG WITHDRAWAL SYNDROME [None]
  - OFF LABEL USE [None]
  - PANIC ATTACK [None]
